FAERS Safety Report 11222985 (Version 3)
Quarter: 2017Q1

REPORT INFORMATION
  Report Type: Report from Study
  Country: US (occurrence: US)
  Receive Date: 20150626
  Receipt Date: 20170202
  Transmission Date: 20170428
  Serious: Yes (Other)
  Sender: FDA-Public Use
  Company Number: US-009507513-1506USA012348

PATIENT
  Age: 19 Year
  Sex: Male
  Weight: 111.8 kg

DRUGS (23)
  1. HEXADROL [Suspect]
     Active Substance: DEXAMETHASONE
     Dosage: CYCLE: 1, CYCLICAL
     Route: 042
     Dates: start: 20150219, end: 20150222
  2. METHOTREXATE SODIUM. [Suspect]
     Active Substance: METHOTREXATE SODIUM
     Dosage: UNK
     Route: 065
     Dates: start: 20150421, end: 20150421
  3. NEULASTA [Suspect]
     Active Substance: PEGFILGRASTIM
     Indication: ACUTE LYMPHOCYTIC LEUKAEMIA
     Dosage: CYCLE 1, CYCLICAL
     Route: 058
     Dates: start: 20150214, end: 20150214
  4. BUSULFAN. [Suspect]
     Active Substance: BUSULFAN
     Dosage: DAYS 1-4
     Route: 042
     Dates: start: 20150409, end: 20150412
  5. MESNA. [Suspect]
     Active Substance: MESNA
     Indication: ACUTE LYMPHOCYTIC LEUKAEMIA
     Dosage: CYCLE 1, CYCLICAL
     Route: 065
     Dates: start: 20150209, end: 20150211
  6. FLUDARABINE PHOSPHATE. [Suspect]
     Active Substance: FLUDARABINE PHOSPHATE
     Dosage: FREQUENCY:DAYS 1-4
     Route: 042
     Dates: start: 20150409, end: 20150412
  7. METHOTREXATE SODIUM. [Suspect]
     Active Substance: METHOTREXATE SODIUM
     Dosage: UNK
     Route: 065
     Dates: start: 20150418, end: 20150418
  8. VINCRISTINE SULFATE. [Suspect]
     Active Substance: VINCRISTINE SULFATE
     Indication: ACUTE LYMPHOCYTIC LEUKAEMIA
     Dosage: CYCLE 1, CYCLICAL
     Route: 042
     Dates: start: 20150209, end: 20150209
  9. HEXADROL [Suspect]
     Active Substance: DEXAMETHASONE
     Indication: ACUTE LYMPHOCYTIC LEUKAEMIA
     Dosage: CYCLE 1, CYCLICAL
     Route: 042
     Dates: start: 20150209, end: 20150212
  10. CYTARABINE. [Suspect]
     Active Substance: CYTARABINE
     Indication: ACUTE LYMPHOCYTIC LEUKAEMIA
     Dosage: CYCLE 1, CYCLICAL
     Route: 037
     Dates: start: 20150216, end: 20150216
  11. CYTARABINE. [Suspect]
     Active Substance: CYTARABINE
     Dosage: CYCLE 2, CYCLICAL
     Route: 037
     Dates: start: 20150310, end: 20150310
  12. CLOFARABINE [Suspect]
     Active Substance: CLOFARABINE
     Dosage: FREQUENCY:DAYS 1-4
     Route: 042
     Dates: start: 20150409, end: 20150412
  13. METHOTREXATE SODIUM. [Suspect]
     Active Substance: METHOTREXATE SODIUM
     Dosage: CYCLE 2, CYCLICAL
     Route: 042
     Dates: start: 20150304, end: 20150304
  14. INOTUZUMAB OZOGAMICIN [Suspect]
     Active Substance: INOTUZUMAB OZOGAMICIN
     Dosage: 1.3 MG/M2,DAY 3, CYCLE 2
     Route: 042
     Dates: start: 20150306, end: 20150306
  15. INOTUZUMAB OZOGAMICIN [Suspect]
     Active Substance: INOTUZUMAB OZOGAMICIN
     Indication: ACUTE LYMPHOCYTIC LEUKAEMIA
     Dosage: 1.3 MG/M2, DAY 3, CYCLE 1
     Route: 042
     Dates: start: 20150211, end: 20150211
  16. CYCLOPHOSPHAMIDE. [Suspect]
     Active Substance: CYCLOPHOSPHAMIDE
     Indication: ACUTE LYMPHOCYTIC LEUKAEMIA
     Dosage: CYCLE 1, CYCLICAL
     Route: 042
     Dates: start: 20150209, end: 20150212
  17. VINCRISTINE SULFATE. [Suspect]
     Active Substance: VINCRISTINE SULFATE
     Dosage: CYCLE 1, CYCLICAL
     Route: 042
     Dates: start: 20150216, end: 20150216
  18. SAHA [Suspect]
     Active Substance: VORINOSTAT
     Dosage: DAYS 1-4
     Route: 042
     Dates: start: 20150409, end: 20150412
  19. METHOTREXATE SODIUM. [Suspect]
     Active Substance: METHOTREXATE SODIUM
     Dosage: UNK
     Route: 065
     Dates: start: 20150416, end: 20150416
  20. CYTARABINE. [Suspect]
     Active Substance: CYTARABINE
     Indication: ACUTE LYMPHOCYTIC LEUKAEMIA
     Dosage: CYCLE 2, CYCLICAL
     Route: 042
     Dates: start: 20150306, end: 20150308
  21. METHOTREXATE SODIUM. [Suspect]
     Active Substance: METHOTREXATE SODIUM
     Indication: ACUTE LYMPHOCYTIC LEUKAEMIA
     Dosage: CYCLE 1, CYCLICAL
     Route: 037
     Dates: start: 20150210, end: 20150210
  22. METHOTREXATE SODIUM. [Suspect]
     Active Substance: METHOTREXATE SODIUM
     Dosage: CYCLE 2, CYCLICAL
     Route: 037
     Dates: start: 20150306, end: 20150306
  23. ACTIGALL [Concomitant]
     Active Substance: URSODIOL
     Dosage: UNK
     Dates: start: 20150409

REACTIONS (2)
  - Weight decreased [Unknown]
  - Hepatobiliary disease [Unknown]

NARRATIVE: CASE EVENT DATE: 20150428
